FAERS Safety Report 6371038-2 (Version None)
Quarter: 2009Q3

REPORT INFORMATION
  Report Type: 
  Country: None (occurrence: None)
  Receive Date: 20090921
  Receipt Date: 20090921
  Transmission Date: 20100115
  Serious: Yes (Hospitalization)
  Sender: FDA-Public Use
  Company Number: None

PATIENT
  Age: 62 Year
  Sex: Male
  Weight: 78.7 kg

DRUGS (1)
  1. DOCETAXEL [Suspect]
     Indication: NEOPLASM
     Dosage: 140 MG ONCE IV
     Route: 042
     Dates: start: 20090902, end: 20090902

REACTIONS (1)
  - FEBRILE NEUTROPENIA [None]
